FAERS Safety Report 7192371-0 (Version None)
Quarter: 2010Q4

REPORT INFORMATION
  Report Type: 
  Country: None (occurrence: None)
  Receive Date: 20101223
  Receipt Date: 20100824
  Transmission Date: 20110411
  Serious: No
  Sender: FDA-Public Use
  Company Number: US-AMGEN-KDL433724

PATIENT

DRUGS (4)
  1. ENBREL [Suspect]
     Indication: JUVENILE ARTHRITIS
     Dosage: 50 MG, QWK
     Route: 058
     Dates: start: 20071126
  2. ENBREL [Suspect]
     Dosage: 50 MG, QWK
     Route: 058
     Dates: start: 20071226
  3. MULTI-VITAMINS [Concomitant]
     Dosage: UNK UNK, QD
     Dates: start: 20080724
  4. TOLMETIN SODIUM [Concomitant]
     Dosage: UNK UNK, BID
     Route: 048

REACTIONS (2)
  - JOINT EFFUSION [None]
  - JUVENILE ARTHRITIS [None]
